FAERS Safety Report 22302438 (Version 1)
Quarter: 2023Q2

REPORT INFORMATION
  Report Type: Report from Study
  Country: US (occurrence: US)
  Receive Date: 20230510
  Receipt Date: 20230510
  Transmission Date: 20230721
  Serious: Yes (Other)
  Sender: FDA-Public Use
  Company Number: US-ABBVIE-4759532

PATIENT
  Sex: Male
  Weight: 73.935 kg

DRUGS (2)
  1. RINVOQ [Suspect]
     Active Substance: UPADACITINIB
     Indication: Arthropathy
     Dosage: FORM STRENGTH: 45 MILLIGRAM
     Route: 048
     Dates: start: 2021
  2. IBUPROFEN [Concomitant]
     Active Substance: IBUPROFEN
     Indication: Pain

REACTIONS (1)
  - Arthropathy [Recovering/Resolving]

NARRATIVE: CASE EVENT DATE: 20220101
